FAERS Safety Report 19634215 (Version 1)
Quarter: 2021Q3

REPORT INFORMATION
  Report Type: Spontaneous
  Country: US (occurrence: US)
  Receive Date: 20210730
  Receipt Date: 20210730
  Transmission Date: 20211014
  Serious: Yes (Other)
  Sender: FDA-Public Use
  Company Number: None

PATIENT
  Age: 73 Year
  Sex: Female
  Weight: 51.3 kg

DRUGS (11)
  1. LEVOTHYROXINE. [Concomitant]
     Active Substance: LEVOTHYROXINE
  2. VITAMIN D3 [Concomitant]
     Active Substance: CHOLECALCIFEROL
  3. OMEGA FISH OIL [Concomitant]
     Active Substance: FISH OIL\OMEGA-3 FATTY ACIDS
  4. TACROLIMUS OINTMENT [Suspect]
     Active Substance: TACROLIMUS
     Indication: BLEPHARITIS
     Route: 061
     Dates: start: 20210120, end: 20210203
  5. VITAMIN C [Concomitant]
     Active Substance: ASCORBIC ACID
  6. CAMG COMPLEX [Concomitant]
  7. MULTI VITAMIN [Concomitant]
     Active Substance: VITAMINS
  8. VITAMIN E [Concomitant]
     Active Substance: .ALPHA.-TOCOPHEROL
  9. LIOTHYRONINE [Concomitant]
     Active Substance: LIOTHYRONINE
  10. LUTEIN + ZEAXANTHIN [Concomitant]
  11. VITAMIN B?COMPLEX [Concomitant]
     Active Substance: DEXPANTHENOL\NIACINAMIDE\PYRIDOXINE HYDROCHLORIDE\RIBOFLAVIN 5^-PHOSPHATE SODIUM\THIAMINE HYDROCHLORIDE

REACTIONS (4)
  - Eyelid infection [None]
  - Basal cell carcinoma [None]
  - Gingivitis [None]
  - Infected cyst [None]

NARRATIVE: CASE EVENT DATE: 20210417
